FAERS Safety Report 22157497 (Version 1)
Quarter: 2023Q1

REPORT INFORMATION
  Report Type: Spontaneous
  Country: PL (occurrence: PL)
  Receive Date: 20230330
  Receipt Date: 20230330
  Transmission Date: 20230418
  Serious: Yes (Life-Threatening)
  Sender: FDA-Public Use
  Company Number: PL-BAUSCH-BL-2023-004747

PATIENT
  Age: 65 Year
  Sex: Male

DRUGS (10)
  1. DEXAMETHASONE [Suspect]
     Active Substance: DEXAMETHASONE
     Indication: COVID-19 pneumonia
     Route: 065
  2. REMDESIVIR [Suspect]
     Active Substance: REMDESIVIR
     Indication: COVID-19 pneumonia
     Route: 065
  3. ENOXAPARIN [Suspect]
     Active Substance: ENOXAPARIN
     Indication: Antiplatelet therapy
     Route: 065
  4. COVID-19 CONVALESCENT PLASMA [Suspect]
     Active Substance: COVID-19 CONVALESCENT PLASMA
     Indication: COVID-19 pneumonia
     Route: 065
  5. TACROLIMUS [Concomitant]
     Active Substance: TACROLIMUS
     Indication: Product used for unknown indication
  6. MYCOPHENOLATE MOFETIL [Concomitant]
     Active Substance: MYCOPHENOLATE MOFETIL
     Indication: Product used for unknown indication
  7. PREDNISONE [Concomitant]
     Active Substance: PREDNISONE
     Indication: Product used for unknown indication
  8. ASPIRIN [Concomitant]
     Active Substance: ASPIRIN
     Indication: Acute myocardial infarction
     Dosage: LOADING DOSE
  9. TICAGRELOR [Concomitant]
     Active Substance: TICAGRELOR
     Indication: Acute myocardial infarction
     Dosage: LOADING DOSE
  10. HEPARIN [Concomitant]
     Active Substance: HEPARIN SODIUM
     Indication: Acute myocardial infarction
     Dosage: LOADING DOSE

REACTIONS (1)
  - Therapy non-responder [Unknown]
